FAERS Safety Report 7081200-1 (Version None)
Quarter: 2010Q4

REPORT INFORMATION
  Report Type: 
  Country: None (occurrence: None)
  Receive Date: 20101025
  Receipt Date: 20101008
  Transmission Date: 20110411
  Serious: Yes (Other)
  Sender: FDA-Public Use
  Company Number: 1000016422

PATIENT
  Age: 47 Year
  Sex: Female
  Weight: 59.7 kg

DRUGS (4)
  1. ESCITALOPRAM [Suspect]
     Indication: DEPRESSION
     Dosage: 10 MG (10 MG, 1 IN 1 D), ORAL
     Route: 048
     Dates: start: 20100326
  2. SERESTA (OXAZEPAM) (OXAZEPAM) [Concomitant]
  3. ZOLPIDEM (ZOLPIDEM (ZOLPIDEM) [Concomitant]
  4. NALTREXONE (NALTREXONE) (NALTREXONE) [Concomitant]

REACTIONS (2)
  - CONDITION AGGRAVATED [None]
  - DEPRESSION [None]
